FAERS Safety Report 11773548 (Version 1)
Quarter: 2015Q4

REPORT INFORMATION
  Report Type: Spontaneous
  Country: US (occurrence: US)
  Receive Date: 20151124
  Receipt Date: 20151124
  Transmission Date: 20160304
  Serious: No
  Sender: FDA-Public Use
  Company Number: US-ASTRAZENECA-2015SF11127

PATIENT
  Age: 84 Year
  Sex: Male

DRUGS (9)
  1. PLAVIX [Concomitant]
     Active Substance: CLOPIDOGREL BISULFATE
  2. COZAAR [Concomitant]
     Active Substance: LOSARTAN POTASSIUM
  3. METFORMIN [Concomitant]
     Active Substance: METFORMIN HYDROCHLORIDE
  4. CRESTOR [Suspect]
     Active Substance: ROSUVASTATIN CALCIUM
     Indication: BLOOD CHOLESTEROL INCREASED
     Route: 048
     Dates: end: 20151023
  5. ACETAMINOPHEN. [Concomitant]
     Active Substance: ACETAMINOPHEN
  6. LUPRON [Concomitant]
     Active Substance: LEUPROLIDE ACETATE
  7. LOSARTAN. [Concomitant]
     Active Substance: LOSARTAN
  8. PREDNISONE. [Concomitant]
     Active Substance: PREDNISONE
  9. HYDROCODONE [Concomitant]
     Active Substance: HYDROCODONE

REACTIONS (1)
  - Polymyalgia rheumatica [Unknown]
